FAERS Safety Report 8625450-9 (Version None)
Quarter: 2012Q3

REPORT INFORMATION
  Report Type: 
  Country: None (occurrence: None)
  Receive Date: 20120827
  Receipt Date: 20120823
  Transmission Date: 20120928
  Serious: Yes (Hospitalization)
  Sender: FDA-Public Use
  Company Number: US-BAYER-2012-073143

PATIENT
  Age: 34 Year
  Sex: Male

DRUGS (14)
  1. IBUPROFEN [Concomitant]
     Indication: PAIN
  2. AMITRIPTYLINE HYDROCHLORIDE [Concomitant]
     Dosage: 10 MG, QD (NIGHTLY)
     Route: 048
  3. ALBUTEROL SULFATE [Concomitant]
     Indication: WHEEZING
  4. COMPLEX B [Concomitant]
  5. GABAPENTIN [Concomitant]
     Dosage: 300 MG (1 CAPSULE), TID
     Route: 048
  6. PERCOCET [Concomitant]
     Dosage: 1 DF, QID (Q6HR) PRN
     Route: 048
  7. FOLIC ACID [Concomitant]
     Dosage: 1 MG, QD
     Route: 048
  8. CYANOCOBALAMIN [Concomitant]
     Dosage: 1,000 MCG/ML, ONCE A WEEK
     Route: 030
  9. IBUPROFEN [Concomitant]
     Indication: PYREXIA
     Dosage: 800 MG (2 TABLETS), QID (Q6HR)
     Route: 048
  10. BETASERON [Suspect]
     Indication: MULTIPLE SCLEROSIS
     Dosage: 0.25 MG, QOD
     Route: 058
     Dates: start: 20120101
  11. ALBUTEROL [Concomitant]
     Dosage: 2 PUFF(S), Q4HR
     Route: 055
  12. SELENIUM SULFIDE [Concomitant]
     Dosage: APPLY AS DIRECTED
     Route: 061
  13. ALBUTEROL SULFATE [Concomitant]
     Indication: DYSPNOEA
     Dosage: 1 PUFF(S), QID (Q6HR) AS NEEDED
     Route: 055
  14. FLUTICASONE PROPIONATE [Concomitant]
     Dosage: 1 PUFF(S), QD
     Route: 055

REACTIONS (11)
  - MULTIPLE SCLEROSIS [None]
  - FATIGUE [None]
  - INJECTION SITE RASH [None]
  - HYPOAESTHESIA [None]
  - ASTHMA [None]
  - FEELING ABNORMAL [None]
  - INJECTION SITE PAIN [None]
  - SCAB [None]
  - DEPRESSION [None]
  - INSOMNIA [None]
  - PRURITUS [None]
